FAERS Safety Report 15201505 (Version 1)
Quarter: 2018Q3

REPORT INFORMATION
  Report Type: Spontaneous
  Country: DE (occurrence: DE)
  Receive Date: 20180726
  Receipt Date: 20180726
  Transmission Date: 20181010
  Serious: Yes (Hospitalization, Other)
  Sender: FDA-Public Use
  Company Number: DE-HETERO CORPORATE-HET2018DE00711

PATIENT
  Age: 34 Year
  Sex: Male

DRUGS (9)
  1. LEVETIRACETAM. [Suspect]
     Active Substance: LEVETIRACETAM
     Indication: EPILEPSY
     Dosage: 500 MG, QD
     Route: 065
  2. ARIPIPRAZOLE. [Suspect]
     Active Substance: ARIPIPRAZOLE
     Indication: PRODUCT USED FOR UNKNOWN INDICATION
     Dosage: 20 MG UNK
     Route: 048
     Dates: start: 20161222
  3. QUETIAPINE. [Suspect]
     Active Substance: QUETIAPINE
     Dosage: UNK (DF = UP TO 400MG 11?AUG (YR UNK) TO 09?SEP?2016 1 DF = 100 TO 300MG ON 14?DEC?2016 1 DF )
     Route: 048
     Dates: start: 20160909
  4. QUETIAPINE. [Suspect]
     Active Substance: QUETIAPINE
     Dosage: UNK (1 DF = UP TO 400MG 11?AUG (YR UNK) TO 09?SEP?2016 1 DF = 100 TO 300MG ON 14?DEC?2016 1 DF = U )
     Route: 048
     Dates: start: 20170207
  5. ARIPIPRAZOLE. [Suspect]
     Active Substance: ARIPIPRAZOLE
     Dosage: 1 UNK (1 DF = UPTO 30MG FROM 11?AUG (YR UNK) TO 09?SEP?2016 1DF = 5MG TO 10MG (14?21?DEC?2016) )
     Route: 048
     Dates: start: 20170207
  6. ARIPIPRAZOLE. [Suspect]
     Active Substance: ARIPIPRAZOLE
     Dosage: 5?20 MG
     Route: 048
     Dates: start: 20161214, end: 20161221
  7. KALIUM DURULE [Concomitant]
     Indication: PRODUCT USED FOR UNKNOWN INDICATION
     Dosage: 1 UNK, QD (1 DF, QD (1 DF = 1 POUCH) )
     Route: 048
     Dates: start: 20161214
  8. ARIPIPRAZOLE. [Suspect]
     Active Substance: ARIPIPRAZOLE
     Dosage: UNK (1 DF = UPTO 30MG FROM 11?AUG (YR UNK) TO 09?SEP?2016 1DF = 5MG TO 10MG (14?21?DEC?2016) )
     Route: 048
     Dates: start: 20160909
  9. QUETIAPINE. [Suspect]
     Active Substance: QUETIAPINE
     Indication: PRODUCT USED FOR UNKNOWN INDICATION
     Dosage: 1 UNK, QD
     Route: 048
     Dates: start: 20161214

REACTIONS (4)
  - Therapy cessation [Unknown]
  - Stupor [Unknown]
  - Hospitalisation [Unknown]
  - Epilepsy [Recovered/Resolved]

NARRATIVE: CASE EVENT DATE: 20161214
